FAERS Safety Report 9728498 (Version 1)
Quarter: 2013Q4

REPORT INFORMATION
  Report Type: Spontaneous
  Country: GB (occurrence: None)
  Receive Date: 20131202
  Receipt Date: 20131202
  Transmission Date: 20140711
  Serious: Yes (Other)
  Sender: FDA-Public Use
  Company Number: CL-538-2013

PATIENT
  Age: 70 Year
  Sex: Male

DRUGS (8)
  1. ONDANSETRON [Suspect]
     Indication: CHEMOTHERAPY
     Dosage: CYCLICAL?
     Route: 042
     Dates: start: 201006
  2. IRINOTECAN [Concomitant]
  3. CALCIUM LEVOFOLINATE [Concomitant]
  4. FLUOROURACIL [Concomitant]
  5. BEVACIZUMAB [Concomitant]
  6. ATROPINE [Concomitant]
  7. ALIZAPRIDE [Concomitant]
  8. LYSINE ACETYLSALICYLATE [Concomitant]

REACTIONS (1)
  - Priapism [None]
